FAERS Safety Report 5637464-1 (Version None)
Quarter: 2008Q1

REPORT INFORMATION
  Report Type: 
  Country: None (occurrence: None)
  Receive Date: 20080219
  Receipt Date: 20080204
  Transmission Date: 20080703
  Serious: Yes (Hospitalization)
  Sender: FDA-Public Use
  Company Number: PHHY2008JP00657

PATIENT

DRUGS (5)
  1. DIOVAN [Suspect]
     Dosage: ORAL
     Route: 048
  2. PURSENNID (NCH)(SENNA GLYCOSIDES (CA SALTS OF PURIFIED SENNA EXTRACT)) [Suspect]
     Dosage: ORAL
     Route: 048
  3. WARFARIN POTASSIUM(WARFARIN POTASSIUM) [Suspect]
     Dosage: ORAL
     Route: 048
  4. ASPIRIN [Suspect]
     Dosage: ORAL
     Route: 048
  5. PLAVIX [Suspect]
     Dosage: ORAL
     Route: 048

REACTIONS (1)
  - HEPATITIS FULMINANT [None]
